FAERS Safety Report 8505324-4 (Version None)
Quarter: 2012Q3

REPORT INFORMATION
  Report Type: 
  Country: None (occurrence: None)
  Receive Date: 20120712
  Receipt Date: 20120706
  Transmission Date: 20120928
  Serious: Yes (Hospitalization)
  Sender: FDA-Public Use
  Company Number: US-PFIZER INC-2012162639

PATIENT
  Sex: Female
  Weight: 61.678 kg

DRUGS (2)
  1. CARVEDILOL [Concomitant]
     Indication: HYPERTENSION
     Dosage: UNK
  2. TOVIAZ [Suspect]
     Indication: HYPERTONIC BLADDER
     Dosage: 4 MG, 1X/DAY
     Route: 048
     Dates: start: 20120401, end: 20120629

REACTIONS (1)
  - BLOOD PRESSURE FLUCTUATION [None]
